FAERS Safety Report 6765314-9 (Version None)
Quarter: 2010Q2

REPORT INFORMATION
  Report Type: 
  Country: None (occurrence: None)
  Receive Date: 20100611
  Receipt Date: 20100505
  Transmission Date: 20101027
  Serious: Yes (Hospitalization, Other)
  Sender: FDA-Public Use
  Company Number: DE-BAYER-201023965GPV

PATIENT
  Age: 63 Year
  Sex: Female

DRUGS (3)
  1. MABCAMPATH [Suspect]
     Indication: B-CELL SMALL LYMPHOCYTIC LYMPHOMA STAGE IV
     Dosage: INTRAVENOUS AND SUBCUTANEOUS APPLICATION
     Route: 058
     Dates: start: 20091001, end: 20100101
  2. COTRIM [Concomitant]
     Indication: INFECTION PROPHYLAXIS
  3. FAMCICLOVIR [Concomitant]
     Indication: INFECTION PROPHYLAXIS

REACTIONS (4)
  - BONE MARROW NECROSIS [None]
  - BONE PAIN [None]
  - FEBRILE INFECTION [None]
  - PANCYTOPENIA [None]
